FAERS Safety Report 7793191-6 (Version None)
Quarter: 2011Q3

REPORT INFORMATION
  Report Type: 
  Country: None (occurrence: None)
  Receive Date: 20110930
  Receipt Date: 20110930
  Transmission Date: 20111222
  Serious: No
  Sender: FDA-Public Use
  Company Number: None

PATIENT
  Age: 80 Year
  Sex: Female
  Weight: 65.7716 kg

DRUGS (1)
  1. PHENYTOIN SODIUM [Suspect]
     Dosage: 1 CAP 3 TIMES/DAY
     Dates: start: 20110812, end: 20110816

REACTIONS (4)
  - PAIN IN EXTREMITY [None]
  - FALL [None]
  - BACK PAIN [None]
  - ARTHRALGIA [None]
